FAERS Safety Report 15728709 (Version 1)
Quarter: 2018Q4

REPORT INFORMATION
  Report Type: Spontaneous
  Country: US (occurrence: US)
  Receive Date: 20181217
  Receipt Date: 20181217
  Transmission Date: 20190205
  Serious: Yes (Other)
  Sender: FDA-Public Use
  Company Number: US-BAYER-2018-211051

PATIENT
  Age: 21 Year
  Sex: Female
  Weight: 64.4 kg

DRUGS (1)
  1. ALKA-SELTZER PLUS MAXIMUM STRENGTH NIGHT COLD AND FLU [Suspect]
     Active Substance: ACETAMINOPHEN\DEXTROMETHORPHAN HYDROBROMIDE\DOXYLAMINE SUCCINATE\PHENYLEPHRINE HYDROCHLORIDE
     Dosage: 2 DF, UNK
     Route: 048

REACTIONS (3)
  - Regurgitation [Recovered/Resolved]
  - Foreign body in respiratory tract [Recovered/Resolved]
  - Choking [Recovered/Resolved]
